FAERS Safety Report 16871727 (Version 1)
Quarter: 2019Q4

REPORT INFORMATION
  Report Type: Other
  Country: US (occurrence: US)
  Receive Date: 20191001
  Receipt Date: 20191001
  Transmission Date: 20200122
  Serious: Yes (Death, Hospitalization, Other)
  Sender: FDA-Public Use
  Company Number: US-MSN LABORATORIES PRIVATE LIMITED-2075116

PATIENT
  Age: 57 Year
  Sex: Female

DRUGS (9)
  1. AMIKACIN SULFATE. [Suspect]
     Active Substance: AMIKACIN SULFATE
     Route: 065
  2. CLARITHROMYCIN. [Suspect]
     Active Substance: CLARITHROMYCIN
     Route: 065
  3. TOBRAMYCIN. [Suspect]
     Active Substance: TOBRAMYCIN
     Route: 065
  4. TIGECYCLINE. [Suspect]
     Active Substance: TIGECYCLINE
     Route: 065
  5. IMIPENEM AND CILASTATIN [Suspect]
     Active Substance: CILASTATIN SODIUM\IMIPENEM
     Route: 065
  6. CEPHALEXIN. [Concomitant]
     Active Substance: CEPHALEXIN
     Route: 065
  7. VANCOMYCIN HYDROCHLORIDE. [Concomitant]
     Active Substance: VANCOMYCIN HYDROCHLORIDE
     Route: 065
  8. MOXIFLOXACIN HYDROCHLORIDE. [Suspect]
     Active Substance: MOXIFLOXACIN HYDROCHLORIDE
     Indication: MYCOBACTERIUM CHELONAE INFECTION
     Route: 065
  9. CLINDAMYCIN. [Concomitant]
     Active Substance: CLINDAMYCIN
     Route: 065

REACTIONS (4)
  - Disease progression [Fatal]
  - Mycobacterium chelonae infection [Fatal]
  - Electrocardiogram QT prolonged [Unknown]
  - Drug ineffective [Unknown]
